FAERS Safety Report 23833326 (Version 4)
Quarter: 2024Q2

REPORT INFORMATION
  Report Type: Spontaneous
  Country: RO (occurrence: None)
  Receive Date: 20240508
  Receipt Date: 20240614
  Transmission Date: 20240716
  Serious: Yes (Death, Life-Threatening, Hospitalization, Other)
  Sender: FDA-Public Use
  Company Number: 2024A107919

PATIENT
  Age: 80 Year
  Sex: Male
  Weight: 100 kg

DRUGS (5)
  1. ROSUVASTATIN [Suspect]
     Active Substance: ROSUVASTATIN
     Indication: Product used for unknown indication
     Dosage: 20 MILLIGRAM, 1/DAY
     Dates: start: 20230401
  2. ALISKIREN HEMIFUMARATE AND AMLODIPINE BESYLATE AND HYDROCHLOROTHIAZIDE [Suspect]
     Active Substance: ALISKIREN HEMIFUMARATE\AMLODIPINE BESYLATE\HYDROCHLOROTHIAZIDE
     Indication: Product used for unknown indication
     Dosage: UNK
     Dates: start: 2018, end: 20240411
  3. FUROSEMIDE [Suspect]
     Active Substance: FUROSEMIDE
     Indication: Product used for unknown indication
     Dosage: UNK
     Dates: start: 20230508
  4. ATORVASTATIN\FENOFIBRATE [Suspect]
     Active Substance: ATORVASTATIN\FENOFIBRATE
     Indication: Product used for unknown indication
     Dosage: UNK
     Dates: start: 20230508
  5. ZILTIVEKIMAB [Suspect]
     Active Substance: ZILTIVEKIMAB
     Indication: Arteriosclerosis
     Dosage: UNK
     Route: 058
     Dates: start: 20230721, end: 20240411

REACTIONS (2)
  - Pancreatitis acute [Fatal]
  - Cardio-respiratory arrest [Fatal]

NARRATIVE: CASE EVENT DATE: 20240409
